FAERS Safety Report 10055918 (Version 3)
Quarter: 2014Q2

REPORT INFORMATION
  Report Type: Spontaneous
  Country: GB (occurrence: PL)
  Receive Date: 20140403
  Receipt Date: 20140530
  Transmission Date: 20141212
  Serious: Yes (Hospitalization)
  Sender: FDA-Public Use
  Company Number: GB-SA-2014SA040607

PATIENT
  Age: 34 Year
  Sex: Male
  Weight: 71 kg

DRUGS (3)
  1. FABRAZYME [Suspect]
     Indication: FABRY^S DISEASE
     Route: 042
     Dates: start: 20140318
  2. FABRAZYME [Suspect]
     Indication: FABRY^S DISEASE
     Route: 042
     Dates: start: 20140423
  3. COLECALCIFEROL [Concomitant]
     Indication: VITAMIN D DECREASED
     Dosage: DOSE:20000 UNIT(S)
     Route: 048
     Dates: start: 20140318

REACTIONS (2)
  - Cerebral haemorrhage [Unknown]
  - Meningitis [Recovered/Resolved]
